FAERS Safety Report 7414734-8 (Version None)
Quarter: 2011Q2

REPORT INFORMATION
  Report Type: 
  Country: None (occurrence: None)
  Receive Date: 20110414
  Receipt Date: 20110411
  Transmission Date: 20111010
  Serious: Yes (Hospitalization, Other)
  Sender: FDA-Public Use
  Company Number: ES-SANOFI-AVENTIS-2011SA021197

PATIENT
  Age: 70 Year
  Sex: Female

DRUGS (6)
  1. SPIRONOLACTONE [Concomitant]
     Indication: CARDIAC FAILURE
     Route: 048
     Dates: start: 20071101
  2. LORAZEPAM [Concomitant]
     Indication: INSOMNIA
     Route: 048
     Dates: start: 20101219
  3. PANTOPRAZOLE [Concomitant]
     Indication: PROPHYLAXIS AGAINST GASTROINTESTINAL ULCER
     Route: 048
     Dates: start: 20101219
  4. INSULIN GLARGINE [Concomitant]
     Indication: TYPE 2 DIABETES MELLITUS
     Route: 058
     Dates: start: 20101219
  5. CLEXANE SYRINGES [Suspect]
     Indication: THROMBOSIS PROPHYLAXIS
     Route: 058
     Dates: start: 20101219, end: 20110103
  6. FUROSEMIDE [Concomitant]
     Indication: CARDIAC FAILURE
     Route: 048
     Dates: start: 20101219

REACTIONS (1)
  - THROMBOCYTOPENIA [None]
